FAERS Safety Report 8785653 (Version 1)
Quarter: 2012Q4

REPORT INFORMATION
  Report Type: 
  Country: HN (occurrence: HN)
  Receive Date: 20120914
  Receipt Date: 20120914
  Transmission Date: 20130627
  Serious: Yes (Other)
  Sender: FDA-Public Use
  Company Number: HN-BAYER-2012-093003

PATIENT
  Age: 33 Year
  Sex: Female

DRUGS (1)
  1. MIRENA [Suspect]
     Indication: CONTRACEPTION
     Dosage: 20 mcg/24hr, CONT
     Route: 015

REACTIONS (1)
  - Deep vein thrombosis [Recovering/Resolving]
